FAERS Safety Report 14072179 (Version 1)
Quarter: 2017Q4

REPORT INFORMATION
  Report Type: Spontaneous
  Country: US (occurrence: US)
  Receive Date: 20171010
  Receipt Date: 20171010
  Transmission Date: 20180321
  Serious: No
  Sender: FDA-Public Use
  Company Number: US-SA-2017SA163158

PATIENT
  Age: 52 Year
  Sex: Female

DRUGS (1)
  1. DUPIXENT [Suspect]
     Active Substance: DUPILUMAB
     Route: 065

REACTIONS (6)
  - Infection [Unknown]
  - Acne [Unknown]
  - Urticaria [Unknown]
  - Abdominal pain upper [Unknown]
  - Gait disturbance [Unknown]
  - Balance disorder [Unknown]
